FAERS Safety Report 22345033 (Version 1)
Quarter: 2023Q2

REPORT INFORMATION
  Report Type: Report from Study
  Country: AR (occurrence: AR)
  Receive Date: 20230519
  Receipt Date: 20230519
  Transmission Date: 20230721
  Serious: Yes (Hospitalization)
  Sender: FDA-Public Use
  Company Number: AR-BIOGEN-2023BI01205780

PATIENT
  Sex: Female

DRUGS (2)
  1. SPINRAZA [Suspect]
     Active Substance: NUSINERSEN
     Indication: Spinal muscular atrophy
     Dosage: 12 MG/5 ML, LAST ADMINISTRATION 10-JAN-2023
     Route: 050
     Dates: start: 20180514
  2. SPINRAZA [Suspect]
     Active Substance: NUSINERSEN
     Dosage: 12 MG/5 ML,
     Route: 050
     Dates: start: 20230110

REACTIONS (1)
  - Spinal operation [Not Recovered/Not Resolved]
